FAERS Safety Report 5731608-9 (Version None)
Quarter: 2008Q2

REPORT INFORMATION
  Report Type: 
  Country: None (occurrence: None)
  Receive Date: 20080508
  Receipt Date: 20080428
  Transmission Date: 20081010
  Serious: Yes (Hospitalization)
  Sender: FDA-Public Use
  Company Number: FR-JNJFOC-20080500087

PATIENT
  Age: 52 Year
  Sex: Female
  Weight: 56 kg

DRUGS (4)
  1. TOPIRAMATE [Suspect]
     Indication: EPILEPSY
  2. CARBAMAZEPINE [Concomitant]
     Indication: EPILEPSY
  3. LAMOTRIGINE [Concomitant]
     Indication: EPILEPSY
  4. PHENOBARBITAL TAB [Concomitant]
     Indication: EPILEPSY

REACTIONS (5)
  - ACIDOSIS [None]
  - BLOOD BICARBONATE DECREASED [None]
  - BLOOD CHLORIDE INCREASED [None]
  - HYPERVENTILATION [None]
  - HYPOKALAEMIA [None]
